FAERS Safety Report 10014488 (Version 1)
Quarter: 2014Q1

REPORT INFORMATION
  Report Type: Report from Study
  Country: GR (occurrence: GR)
  Receive Date: 20140317
  Receipt Date: 20140317
  Transmission Date: 20141002
  Serious: Yes (Other)
  Sender: FDA-Public Use
  Company Number: GR-ROCHE-1366608

PATIENT
  Sex: Female

DRUGS (3)
  1. PEG-INTERFERON ALFA 2A [Suspect]
     Indication: HEPATITIS B
     Route: 065
  2. INTERFERON ALFA-2A [Suspect]
     Indication: HEPATITIS B
     Route: 065
  3. ADEFOVIR [Concomitant]
     Indication: HEPATITIS C
     Dosage: ADEFOVIR THERAPY FOR 48 WEEKS FOLLOWING INTERFERON ALFA 2A AND THE ADEFOVIR IN COMBINATION OF PEG IN
     Route: 065

REACTIONS (1)
  - Autoimmune hepatitis [Unknown]
